FAERS Safety Report 9848896 (Version 1)
Quarter: 2014Q1

REPORT INFORMATION
  Report Type: Spontaneous
  Country: US (occurrence: US)
  Receive Date: 20140128
  Receipt Date: 20140128
  Transmission Date: 20141002
  Serious: No
  Sender: FDA-Public Use
  Company Number: US-009507513-1401USA007167

PATIENT
  Age: 36 Year
  Sex: Male

DRUGS (1)
  1. ZEGERID OTC CAPSULES [Suspect]
     Indication: DYSPEPSIA
     Dosage: UNK, QD
     Route: 048
     Dates: start: 20131211, end: 20131221

REACTIONS (5)
  - Neck pain [Not Recovered/Not Resolved]
  - Musculoskeletal pain [Not Recovered/Not Resolved]
  - Pain in extremity [Not Recovered/Not Resolved]
  - Arthralgia [Not Recovered/Not Resolved]
  - Generalised erythema [Not Recovered/Not Resolved]
